FAERS Safety Report 6209112-3 (Version None)
Quarter: 2009Q2

REPORT INFORMATION
  Report Type: 
  Country: None (occurrence: None)
  Receive Date: 20090522
  Receipt Date: 20090126
  Transmission Date: 20091009
  Serious: No
  Sender: FDA-Public Use
  Company Number: 8041836

PATIENT
  Age: 49 Year
  Sex: Female
  Weight: 73.6 kg

DRUGS (20)
  1. CIMZIA [Suspect]
     Indication: CROHN'S DISEASE
     Dosage: 400 MG 1/2W SC
     Route: 058
     Dates: start: 20081223
  2. ZOFRAN [Concomitant]
  3. LORTAB [Concomitant]
  4. COMPAZINE [Concomitant]
  5. PROZAC [Concomitant]
  6. NYSTATIN [Concomitant]
  7. ASPIRIN [Concomitant]
  8. CHANTIX [Concomitant]
  9. FISH OIL [Concomitant]
  10. MAGNESIUM SULFATE [Concomitant]
  11. ZINC [Concomitant]
  12. FOSAMAX [Concomitant]
  13. AMITIZA [Concomitant]
  14. CLONIDINE [Concomitant]
  15. NEURONTIN [Concomitant]
  16. PREDNISONE [Concomitant]
  17. DILAUDID [Concomitant]
  18. TRAMADOL HCL [Concomitant]
  19. CRESTOR [Concomitant]
  20. DIFLUCAN [Concomitant]

REACTIONS (1)
  - FATIGUE [None]
